FAERS Safety Report 5150270-X (Version None)
Quarter: 2006Q4

REPORT INFORMATION
  Report Type: 
  Country: None (occurrence: None)
  Receive Date: 20061109
  Receipt Date: 20061109
  Transmission Date: 20070319
  Serious: Yes (Hospitalization)
  Sender: FDA-Public Use
  Company Number: None

PATIENT
  Age: 69 Year
  Sex: Male
  Weight: 78.0187 kg

DRUGS (12)
  1. GEMCITABINE [Suspect]
     Dosage: 720 MG/M2
     Dates: start: 20060728, end: 20061006
  2. DOCETAXEL [Suspect]
     Dosage: 80 MG/M2
     Dates: start: 20060804, end: 20061006
  3. ASPIRIN [Concomitant]
  4. CARDURA [Concomitant]
  5. ENOXAPARIN SODIUM [Concomitant]
  6. FLOMAX [Concomitant]
  7. LASIX [Concomitant]
  8. LIPITOR [Concomitant]
  9. LOTREL [Concomitant]
  10. POTASSIUM CHLORIDE [Concomitant]
  11. ZAROXOLYN [Concomitant]
  12. OXYCODONE HCL [Concomitant]

REACTIONS (4)
  - ATELECTASIS [None]
  - EXTRINSIC ILIAC VEIN COMPRESSION [None]
  - OEDEMA PERIPHERAL [None]
  - TUMOUR INVASION [None]
